FAERS Safety Report 16586211 (Version 4)
Quarter: 2019Q3

REPORT INFORMATION
  Report Type: Report from Study
  Country: US (occurrence: US)
  Receive Date: 20190717
  Receipt Date: 20190919
  Transmission Date: 20191004
  Serious: Yes (Hospitalization, Other)
  Sender: FDA-Public Use
  Company Number: US-PFIZER INC-2019302567

PATIENT
  Age: 59 Year
  Sex: Male

DRUGS (1)
  1. IBRANCE [Suspect]
     Active Substance: PALBOCICLIB
     Indication: BREAST CANCER
     Dosage: 125 MG, CYCLIC, (DAILY 21 DAYS ON AND 7 DAYS OFF)
     Route: 048
     Dates: start: 20190618

REACTIONS (12)
  - Cardiac failure congestive [Unknown]
  - Bone marrow failure [Recovered/Resolved]
  - Hypokalaemia [Recovered/Resolved]
  - Respiratory disorder [Recovered/Resolved]
  - Pneumonia [Recovered/Resolved]
  - Flushing [Unknown]
  - Fatigue [Unknown]
  - Xerosis [Unknown]
  - Alopecia [Unknown]
  - Pain of skin [Recovered/Resolved]
  - Neuropathy peripheral [Unknown]
  - Hot flush [Unknown]
